FAERS Safety Report 11885228 (Version 2)
Quarter: 2016Q1

REPORT INFORMATION
  Report Type: Spontaneous
  Country: PL (occurrence: PL)
  Receive Date: 20160104
  Receipt Date: 20160111
  Transmission Date: 20160526
  Serious: Yes (Hospitalization)
  Sender: FDA-Public Use
  Company Number: PHHY2015PL171368

PATIENT
  Age: 12 Year
  Sex: Female
  Weight: 34.5 kg

DRUGS (1)
  1. CICLOSPORIN [Suspect]
     Active Substance: CYCLOSPORINE
     Indication: DERMATITIS ATOPIC
     Dosage: 125 MG, DAILY (100 MG IN MORNING AND 25 MG IN EVENING)
     Route: 048
     Dates: start: 20140710, end: 20140717

REACTIONS (1)
  - Tachycardia [Recovered/Resolved]

NARRATIVE: CASE EVENT DATE: 20140717
